FAERS Safety Report 20991321 (Version 1)
Quarter: 2022Q2

REPORT INFORMATION
  Report Type: Report from Study
  Country: GB (occurrence: GB)
  Receive Date: 20220622
  Receipt Date: 20220622
  Transmission Date: 20220721
  Serious: Yes (Other)
  Sender: FDA-Public Use
  Company Number: GB-NOVARTISPH-NVSC2022GB138252

PATIENT
  Sex: Male

DRUGS (2)
  1. COSENTYX [Suspect]
     Active Substance: SECUKINUMAB
     Indication: Spondyloarthropathy
     Dosage: 300 MG, QMO
     Route: 058
     Dates: start: 2017
  2. METHOTREXATE [Concomitant]
     Active Substance: METHOTREXATE
     Indication: Mental disorder
     Dosage: UNK
     Route: 065

REACTIONS (1)
  - Condition aggravated [Unknown]
